FAERS Safety Report 14297951 (Version 1)
Quarter: 2017Q4

REPORT INFORMATION
  Report Type: Spontaneous
  Country: US (occurrence: US)
  Receive Date: 20171218
  Receipt Date: 20171218
  Transmission Date: 20180321
  Serious: Yes (Hospitalization)
  Sender: FDA-Public Use
  Company Number: US-BAYER-2017-236942

PATIENT
  Age: 60 Year
  Sex: Female

DRUGS (5)
  1. ALPRAZOLAM. [Suspect]
     Active Substance: ALPRAZOLAM
     Indication: DEPRESSION
     Dosage: 0.25 MG, PRN
  2. BAYER LOW DOSE [Suspect]
     Active Substance: ASPIRIN
     Indication: HEADACHE
  3. ALPRAZOLAM. [Suspect]
     Active Substance: ALPRAZOLAM
     Indication: SLEEP DISORDER THERAPY
  4. BAYER LOW DOSE [Suspect]
     Active Substance: ASPIRIN
     Indication: ISCHAEMIA
     Dosage: 81 MG, QD
     Route: 048
     Dates: start: 201709
  5. ALPRAZOLAM. [Suspect]
     Active Substance: ALPRAZOLAM
     Indication: ANXIETY
     Dosage: ONE QUARTER OF 0.5MG, PRN

REACTIONS (14)
  - Panic attack [Not Recovered/Not Resolved]
  - Headache [Recovering/Resolving]
  - Paraesthesia [None]
  - Nervousness [Not Recovered/Not Resolved]
  - Head discomfort [Unknown]
  - Dizziness [Recovering/Resolving]
  - Disturbance in attention [Not Recovered/Not Resolved]
  - Dizziness [None]
  - Depersonalisation/derealisation disorder [Unknown]
  - Nausea [Unknown]
  - Headache [Recovered/Resolved]
  - Anxiety [Not Recovered/Not Resolved]
  - Headache [Unknown]
  - Somnolence [Recovered/Resolved]

NARRATIVE: CASE EVENT DATE: 2017
